FAERS Safety Report 14216011 (Version 1)
Quarter: 2017Q4

REPORT INFORMATION
  Report Type: Report from Study
  Country: US (occurrence: US)
  Receive Date: 20171122
  Receipt Date: 20171122
  Transmission Date: 20180321
  Serious: Yes (Hospitalization, Other)
  Sender: FDA-Public Use
  Company Number: US-SHIRE-US201729786

PATIENT
  Age: 32 Year
  Sex: Female
  Weight: 68.27 kg

DRUGS (2)
  1. LIALDA [Suspect]
     Active Substance: MESALAMINE
     Indication: COLITIS ULCERATIVE
     Dosage: 1.2 G, 4X/DAY:QID
     Route: 048
     Dates: start: 201512
  2. LIALDA [Suspect]
     Active Substance: MESALAMINE
     Dosage: 1.2 G, 3X/DAY:TID
     Route: 048
     Dates: start: 2011, end: 201511

REACTIONS (3)
  - Diarrhoea [Recovered/Resolved]
  - Haematochezia [Recovered/Resolved]
  - Pain [Recovered/Resolved]

NARRATIVE: CASE EVENT DATE: 201511
